FAERS Safety Report 19079385 (Version 9)
Quarter: 2024Q2

REPORT INFORMATION
  Report Type: Spontaneous
  Country: US (occurrence: US)
  Receive Date: 20210331
  Receipt Date: 20240417
  Transmission Date: 20240716
  Serious: Yes (Other)
  Sender: FDA-Public Use
  Company Number: US-PFIZER INC-2021330643

PATIENT
  Age: 71 Year
  Sex: Female
  Weight: 70.76 kg

DRUGS (5)
  1. XELJANZ XR [Suspect]
     Active Substance: TOFACITINIB CITRATE
     Dosage: 11 MG, 1X/DAY, [11MG; TAKES ONE ONCE PER DAY BY MOUTH]
     Route: 048
  2. LEXAPRO [Concomitant]
     Active Substance: ESCITALOPRAM OXALATE
     Dosage: UNK
  3. LISINOPRIL [Concomitant]
     Active Substance: LISINOPRIL
     Dosage: UNK
  4. PROTONIX [Concomitant]
     Active Substance: PANTOPRAZOLE SODIUM
     Dosage: UNK
  5. TIZANIDINE [Concomitant]
     Active Substance: TIZANIDINE
     Dosage: UNK

REACTIONS (13)
  - Triple negative breast cancer [Recovered/Resolved]
  - Atrial fibrillation [Unknown]
  - Allergy to plants [Unknown]
  - Alopecia [Unknown]
  - Burning sensation [Unknown]
  - Peripheral swelling [Unknown]
  - Neuralgia [Unknown]
  - Skin exfoliation [Unknown]
  - Arthralgia [Unknown]
  - Red blood cell morphology abnormal [Unknown]
  - Psoriasis [Unknown]
  - Stress [Unknown]
  - Blood pressure abnormal [Unknown]

NARRATIVE: CASE EVENT DATE: 20200601
